FAERS Safety Report 12691382 (Version 4)
Quarter: 2016Q4

REPORT INFORMATION
  Report Type: Report from Study
  Country: CA (occurrence: CA)
  Receive Date: 20160826
  Receipt Date: 20161021
  Transmission Date: 20170207
  Serious: Yes (Other)
  Sender: FDA-Public Use
  Company Number: CA-VERTEX PHARMACEUTICALS-2016-004943

PATIENT
  Age: 35 Year
  Sex: Female

DRUGS (2)
  1. CIPRALEX [Interacting]
     Active Substance: ESCITALOPRAM OXALATE
     Indication: DEPRESSION
     Dosage: 20 MG, QD
     Route: 048
  2. ORKAMBI [Suspect]
     Active Substance: IVACAFTOR\LUMACAFTOR
     Indication: CYSTIC FIBROSIS
     Dosage: 400-250 MG, BID
     Route: 048
     Dates: start: 20160802, end: 20160811

REACTIONS (4)
  - Nausea [Recovered/Resolved]
  - Increased appetite [Not Recovered/Not Resolved]
  - Suicidal ideation [Unknown]
  - Drug interaction [Unknown]

NARRATIVE: CASE EVENT DATE: 20160811
